FAERS Safety Report 4267965-2 (Version None)
Quarter: 2004Q1

REPORT INFORMATION
  Report Type: 
  Country: None (occurrence: None)
  Receive Date: 20040109
  Receipt Date: 20030826
  Transmission Date: 20041129
  Serious: Yes (Hospitalization, Disabling)
  Sender: FDA-Public Use
  Company Number: WAES 0308USA02595

PATIENT
  Age: 56 Year
  Sex: Male
  Weight: 101 kg

DRUGS (6)
  1. VICODIN [Concomitant]
  2. ASPIRIN [Concomitant]
  3. ADVIL [Concomitant]
  4. ADVIL [Concomitant]
     Indication: HERPES ZOSTER
  5. VIOXX [Suspect]
     Indication: ARTHRALGIA
     Route: 048
     Dates: start: 20010716, end: 20010722
  6. VIOXX [Suspect]
     Route: 048
     Dates: start: 20010723, end: 20010918

REACTIONS (5)
  - ACUTE MYOCARDIAL INFARCTION [None]
  - CORONARY ARTERY OCCLUSION [None]
  - INJURY [None]
  - MYOCARDIAL INFARCTION [None]
  - NERVOUSNESS [None]
